FAERS Safety Report 9221437 (Version 4)
Quarter: 2014Q1

REPORT INFORMATION
  Report Type: Spontaneous
  Country: GB (occurrence: GB)
  Receive Date: 20130410
  Receipt Date: 20140131
  Transmission Date: 20141002
  Serious: Yes (Hospitalization)
  Sender: FDA-Public Use
  Company Number: PHHY2013GB033215

PATIENT
  Age: 49 Year
  Sex: Female

DRUGS (8)
  1. DIAZEPAM [Suspect]
     Indication: PRODUCT USED FOR UNKNOWN INDICATION
  2. DIAZEPAM [Suspect]
     Indication: UNEVALUABLE EVENT
     Route: 065
  3. IBUPROFEN [Suspect]
     Indication: PRODUCT USED FOR UNKNOWN INDICATION
  4. EPILIM [Suspect]
     Indication: EPILEPSY
     Dosage: 6 G, QD
     Dates: start: 20030808, end: 20030808
  5. EPILIM [Suspect]
     Dosage: DOSAGE FORM: UNKNOWN
     Dates: start: 20030808, end: 20030808
  6. ZOTON [Suspect]
     Indication: PRODUCT USED FOR UNKNOWN INDICATION
  7. ZOTON [Suspect]
     Indication: UNEVALUABLE EVENT
     Route: 048
  8. CLOZAPINE [Concomitant]

REACTIONS (7)
  - Disturbance in attention [Recovered/Resolved]
  - Feeling hot [Recovered/Resolved]
  - Hyperhidrosis [Recovered/Resolved]
  - Ataxia [Recovered/Resolved]
  - Somnolence [Recovered/Resolved]
  - Sedation [Unknown]
  - Overdose [Unknown]
